FAERS Safety Report 17883120 (Version 2)
Quarter: 2020Q3

REPORT INFORMATION
  Report Type: Report from Study
  Country: US (occurrence: US)
  Receive Date: 20200611
  Receipt Date: 20200721
  Transmission Date: 20201105
  Serious: Yes (Life-Threatening, Hospitalization, Other)
  Sender: FDA-Public Use
  Company Number: US-BRISTOL-MYERS SQUIBB COMPANY-BMS-2020-044570

PATIENT
  Age: 65 Year
  Sex: Male

DRUGS (2)
  1. NIVOLUMAB [Suspect]
     Active Substance: NIVOLUMAB
     Indication: METASTATIC NEOPLASM
     Dosage: 480 MILLIGRAM, Q4WK (4TH CYCLE)
     Route: 065
  2. SITRAVATINIB. [Suspect]
     Active Substance: SITRAVATINIB
     Indication: METASTATIC NEOPLASM
     Dosage: 120 MILLIGRAM, QD
     Route: 048

REACTIONS (2)
  - Myositis [Recovering/Resolving]
  - Myasthenia gravis crisis [Recovering/Resolving]
